FAERS Safety Report 9431748 (Version 1)
Quarter: 2013Q3

REPORT INFORMATION
  Report Type: Spontaneous
  Country: FR (occurrence: FR)
  Receive Date: 20130731
  Receipt Date: 20130731
  Transmission Date: 20140515
  Serious: Yes (Death)
  Sender: FDA-Public Use
  Company Number: FR-ROCHE-1254448

PATIENT
  Age: 87 Year
  Sex: Male

DRUGS (8)
  1. ROCEPHINE [Suspect]
     Indication: LUNG INFECTION
     Route: 065
     Dates: start: 20130619, end: 20130621
  2. KEPPRA [Suspect]
     Indication: EPILEPSY
     Route: 048
     Dates: start: 201304
  3. AVODART [Concomitant]
  4. COVERSYL [Concomitant]
  5. ALLOPURINOL [Concomitant]
     Route: 065
  6. DAFALGAN [Concomitant]
  7. PRADAXA [Concomitant]
  8. ZELITREX [Concomitant]

REACTIONS (1)
  - Agranulocytosis [Fatal]
